FAERS Safety Report 4555400-6 (Version None)
Quarter: 2005Q1

REPORT INFORMATION
  Report Type: 
  Country: None (occurrence: None)
  Receive Date: 20050118
  Receipt Date: 20050118
  Transmission Date: 20050727
  Serious: Yes (Hospitalization)
  Sender: FDA-Public Use
  Company Number: None

PATIENT
  Age: 26 Year
  Sex: Female
  Weight: 62.5964 kg

DRUGS (1)
  1. DOXYCYCLINE [Suspect]
     Indication: VAGINAL INFECTION
     Dosage: 1 2 ORAL
     Route: 048

REACTIONS (10)
  - BURNING SENSATION [None]
  - CHEST PAIN [None]
  - CHILLS [None]
  - FATIGUE [None]
  - INFLAMMATION [None]
  - OEDEMA MOUTH [None]
  - ORAL DISCOMFORT [None]
  - PAIN [None]
  - PHARYNGOLARYNGEAL PAIN [None]
  - URTICARIA [None]
